FAERS Safety Report 10256072 (Version 1)
Quarter: 2014Q2

REPORT INFORMATION
  Report Type: Spontaneous
  Country: US (occurrence: US)
  Receive Date: 20140624
  Receipt Date: 20140624
  Transmission Date: 20141212
  Serious: No
  Sender: FDA-Public Use
  Company Number: US-ZOGENIX, INC.-2012ZX000094

PATIENT
  Age: 51 Year
  Sex: Female
  Weight: 90.8 kg

DRUGS (9)
  1. SUMAVEL DOSEPRO [Suspect]
     Indication: MIGRAINE
     Dates: start: 201111
  2. SUMAVEL DOSEPRO [Suspect]
     Dates: start: 20120226, end: 20120226
  3. SUMAVEL DOSEPRO [Suspect]
     Dates: start: 20120227, end: 20120227
  4. TOPAMAX [Concomitant]
     Indication: MIGRAINE
  5. NEURONTIN [Concomitant]
     Indication: MIGRAINE
  6. CYMBALTA [Concomitant]
     Indication: MIGRAINE
  7. BOTOX [Concomitant]
     Indication: MIGRAINE
  8. HCTZ [Concomitant]
     Indication: PRODUCT USED FOR UNKNOWN INDICATION
  9. SINGULAIR [Concomitant]
     Indication: DYSPNOEA

REACTIONS (3)
  - Drug effect incomplete [Recovered/Resolved]
  - Injection site bruising [Recovered/Resolved]
  - Device malfunction [Recovered/Resolved]
